FAERS Safety Report 16831372 (Version 1)
Quarter: 2019Q3

REPORT INFORMATION
  Report Type: Spontaneous
  Country: US (occurrence: US)
  Receive Date: 20190920
  Receipt Date: 20190920
  Transmission Date: 20191005
  Serious: No
  Sender: FDA-Public Use
  Company Number: US-ALNYLAM PHARMACEUTICALS, INC.-ALN-2019-000232

PATIENT
  Age: 67 Year
  Sex: Male
  Weight: 95.69 kg

DRUGS (1)
  1. ONPATTRO [Suspect]
     Active Substance: PATISIRAN SODIUM
     Indication: HEREDITARY NEUROPATHIC AMYLOIDOSIS
     Dosage: 29 MILLIGRAM/200 ML, Q3W
     Route: 042
     Dates: start: 20181130

REACTIONS (2)
  - Product dose omission [Unknown]
  - Poor venous access [Unknown]

NARRATIVE: CASE EVENT DATE: 20190318
